FAERS Safety Report 18443828 (Version 1)
Quarter: 2020Q4

REPORT INFORMATION
  Report Type: Spontaneous
  Country: GB (occurrence: GB)
  Receive Date: 20201030
  Receipt Date: 20201030
  Transmission Date: 20210114
  Serious: Yes (Other)
  Sender: FDA-Public Use
  Company Number: GB-TEVA-2020-GB-1842229

PATIENT
  Age: 14 Year
  Sex: Female
  Weight: 62 kg

DRUGS (8)
  1. NYSTATIN. [Concomitant]
     Active Substance: NYSTATIN
     Dosage: 4 ML
     Dates: start: 20200821, end: 20200828
  2. AMOXICILLIN. [Suspect]
     Active Substance: AMOXICILLIN
     Dosage: 1500 MG
     Dates: start: 20200815
  3. SODIUM PICOSULFATE [Concomitant]
     Active Substance: SODIUM PICOSULFATE
     Dosage: 2.5 ML DAILY; AT NIGHT
     Dates: start: 20200611
  4. SOLIFENACIN [Concomitant]
     Active Substance: SOLIFENACIN
     Dosage: 1 DOSAGE FORMS
     Dates: start: 20200611
  5. DESMOPRESSIN [Concomitant]
     Active Substance: DESMOPRESSIN
     Dosage: 1 DOSAGE FORMS DAILY; AT NIGHT
     Dates: start: 20200611
  6. MOVICOL [Concomitant]
     Active Substance: POLYETHYLENE GLYCOL 3350\POTASSIUM CHLORIDE\SODIUM BICARBONATE\SODIUM CHLORIDE
     Dosage: 4 DOSAGE FORMS ,SACHETS
     Dates: start: 20191231
  7. PARACETAMOL [Concomitant]
     Active Substance: ACETAMINOPHEN
     Dosage: 20 ML ,SPOON
     Dates: start: 20191231
  8. IBUPROFEN. [Concomitant]
     Active Substance: IBUPROFEN
     Dosage: 3 DOSAGE FORMS
     Dates: start: 20200611

REACTIONS (3)
  - Swollen tongue [Recovered/Resolved]
  - Tongue erythema [Recovered/Resolved]
  - Glossodynia [Recovered/Resolved]

NARRATIVE: CASE EVENT DATE: 20200821
